FAERS Safety Report 8813663 (Version 1)
Quarter: 2012Q4

REPORT INFORMATION
  Report Type: 
  Country: US (occurrence: US)
  Receive Date: 20120927
  Receipt Date: 20120927
  Transmission Date: 20130627
  Serious: No
  Sender: FDA-Public Use
  Company Number: US-B.I. PHARMACEUTICALS,INC./RIDGEFIELD-2012-BP-23302BP

PATIENT
  Age: 80 Year
  Sex: Female
  Weight: 59 kg

DRUGS (12)
  1. PRADAXA [Suspect]
     Dosage: 300 mg
     Route: 048
     Dates: start: 201107
  2. SANCTURA XR [Concomitant]
     Indication: BLADDER DISORDER
     Dosage: 60 mg
     Route: 048
  3. SYNTHROID [Concomitant]
     Indication: THYROID DISORDER
     Dosage: 0.88 mcg
     Route: 048
  4. LASIX [Concomitant]
     Indication: CARDIAC DISORDER
     Dosage: 20 mg
     Route: 048
  5. SPIRONOLACTONE [Concomitant]
     Indication: CARDIAC DISORDER
     Dosage: 25 mg
     Route: 048
  6. COREG [Concomitant]
     Indication: CARDIAC DISORDER
     Dosage: 13 mg
     Route: 048
  7. LEXAPRO [Concomitant]
     Indication: DEPRESSION
     Dosage: 10 mg
     Route: 048
  8. LANOXIN [Concomitant]
     Indication: CARDIAC DISORDER
     Dosage: 0.125 mg
     Route: 048
  9. ZOCOR [Concomitant]
     Dosage: 20 mg
     Route: 048
  10. CLARITIN [Concomitant]
     Indication: NASAL DECONGESTION THERAPY
     Dosage: 5 mg
     Route: 048
  11. ANASTROZOLE [Concomitant]
     Dosage: 1 mg
     Route: 048
  12. CALCITRIOL [Concomitant]
     Indication: RENAL DISORDER
     Dosage: 0.5 mcg
     Route: 048

REACTIONS (1)
  - Dysphagia [Not Recovered/Not Resolved]
